FAERS Safety Report 4838486-0 (Version None)
Quarter: 2005Q4

REPORT INFORMATION
  Report Type: 
  Country: None (occurrence: None)
  Receive Date: 20051123
  Receipt Date: 20051114
  Transmission Date: 20060501
  Serious: Yes (Other)
  Sender: FDA-Public Use
  Company Number: HECT-10139

PATIENT
  Age: 53 Year
  Sex: Male
  Weight: 120.6568 kg

DRUGS (17)
  1. HECTOROL [Suspect]
     Indication: HYPERPARATHYROIDISM SECONDARY
     Dosage: 2.5 MCG QD PO
     Route: 048
     Dates: start: 20050609, end: 20050928
  2. AMBIEN [Concomitant]
  3. LASIX [Concomitant]
  4. LISINOPRIL [Concomitant]
  5. ZOLOFT [Concomitant]
  6. HUMALOG [Concomitant]
  7. NIASPAN [Concomitant]
  8. HYDROCODONE ACETAMINOPHEN [Concomitant]
  9. LANTUS (INSULIN GLARGINE-SYSTEMIC) [Concomitant]
  10. FLONASE [Concomitant]
  11. TOPROL-XL [Concomitant]
  12. BENICAR [Concomitant]
  13. ARANESP [Concomitant]
  14. CADUET (AMLODIPINE AND ATORVASTATIN) [Concomitant]
  15. ZYRTEC [Concomitant]
  16. BAKING SODA [Concomitant]
  17. BUPROPION HCL [Concomitant]

REACTIONS (12)
  - ANXIETY [None]
  - BLOOD PRESSURE DIASTOLIC INCREASED [None]
  - BLOOD PRESSURE SYSTOLIC INCREASED [None]
  - CONDITION AGGRAVATED [None]
  - NEPHRITIS INTERSTITIAL [None]
  - NERVOUSNESS [None]
  - POLLAKIURIA [None]
  - RENAL FAILURE CHRONIC [None]
  - RENAL IMPAIRMENT [None]
  - SOFT TISSUE DISORDER [None]
  - SWELLING [None]
  - VOMITING [None]
